FAERS Safety Report 9131788 (Version 1)
Quarter: 2013Q1

REPORT INFORMATION
  Report Type: Report from Study
  Country: US (occurrence: US)
  Receive Date: 20130301
  Receipt Date: 20130301
  Transmission Date: 20140127
  Serious: No
  Sender: FDA-Public Use
  Company Number: US-MYLANLABS-2012S1020662

PATIENT
  Age: 14 Year
  Sex: Male
  Weight: 58.97 kg

DRUGS (4)
  1. CLARAVIS [Suspect]
  2. AMNESTEEM CAPSULES [Suspect]
     Indication: ACNE
     Route: 048
     Dates: start: 20120518, end: 20121002
  3. AMNESTEEM CAPSULES [Suspect]
     Indication: ACNE
     Route: 048
     Dates: start: 201208, end: 20121002
  4. KENALOG [Concomitant]
     Dosage: INTRALESIONAL INJECTION

REACTIONS (3)
  - Arthralgia [Recovered/Resolved]
  - Skin warm [Recovered/Resolved]
  - Erythema [Recovered/Resolved]
